FAERS Safety Report 12642193 (Version 1)
Quarter: 2016Q3

REPORT INFORMATION
  Report Type: Spontaneous
  Country: JP (occurrence: JP)
  Receive Date: 20160810
  Receipt Date: 20160810
  Transmission Date: 20161109
  Serious: Yes (Other)
  Sender: FDA-Public Use
  Company Number: JP-PFIZER INC-2011059533

PATIENT
  Age: 63 Year
  Sex: Male

DRUGS (10)
  1. CYTARABINE. [Suspect]
     Active Substance: CYTARABINE
  2. FLUDARABINE [Suspect]
     Active Substance: FLUDARABINE PHOSPHATE
  3. DOXORUBICIN [Suspect]
     Active Substance: DOXORUBICIN
  4. RITUXIMAB [Suspect]
     Active Substance: RITUXIMAB
  5. CYCLOPHOSPHAMIDE. [Suspect]
     Active Substance: CYCLOPHOSPHAMIDE
  6. IFOMIDE [Suspect]
     Active Substance: IFOSFAMIDE
  7. VINCRISTINE [Suspect]
     Active Substance: VINCRISTINE
  8. PREDNISOLONE. [Suspect]
     Active Substance: PREDNISOLONE
  9. ETOPOSIDE. [Suspect]
     Active Substance: ETOPOSIDE
  10. MITOXANTRONE HCL [Suspect]
     Active Substance: MITOXANTRONE HYDROCHLORIDE

REACTIONS (1)
  - Hepatitis B [Unknown]
